FAERS Safety Report 7571718-7 (Version None)
Quarter: 2011Q2

REPORT INFORMATION
  Report Type: 
  Country: None (occurrence: None)
  Receive Date: 20110624
  Receipt Date: 20110613
  Transmission Date: 20111010
  Serious: Yes (Hospitalization, Other)
  Sender: FDA-Public Use
  Company Number: US-CELGENEUS-163-21880-11052471

PATIENT
  Sex: Male
  Weight: 60.382 kg

DRUGS (26)
  1. CARDIZEM [Concomitant]
     Route: 065
  2. MUCINEX [Concomitant]
     Route: 065
  3. PROTONIX [Concomitant]
     Route: 065
  4. DIFLUCAN [Concomitant]
     Route: 065
  5. INSULIN [Concomitant]
     Route: 065
  6. SODIUM BICARBONATE [Concomitant]
     Route: 065
  7. NEURONTIN [Concomitant]
     Route: 065
  8. MEGACE [Concomitant]
     Route: 065
  9. REMERON [Concomitant]
     Route: 065
  10. REVLIMID [Suspect]
     Dosage: 10 MILLIGRAM
     Dates: start: 20101201
  11. REVLIMID [Suspect]
     Dosage: 25 MILLIGRAM
     Route: 048
     Dates: start: 20101101
  12. ZOCOR [Concomitant]
     Route: 065
  13. ASPIRIN [Concomitant]
     Route: 065
  14. VICODIN [Concomitant]
     Route: 065
  15. FENTANYL [Concomitant]
     Route: 065
  16. TOBRAMYCIN [Concomitant]
     Route: 065
  17. LANTUS [Concomitant]
     Route: 065
  18. LEVOTHYROXINE SODIUM [Concomitant]
     Route: 065
  19. BISACODYL [Concomitant]
     Route: 065
  20. NORVASC [Concomitant]
     Route: 065
  21. ZOSYN [Concomitant]
     Route: 065
  22. ATIVAN [Concomitant]
     Route: 065
  23. BACTRIM [Concomitant]
     Route: 065
  24. ASCORBIC ACID [Concomitant]
     Route: 065
  25. DEXAMETHASONE [Concomitant]
     Route: 065
  26. VANCOMYCIN [Concomitant]
     Route: 065

REACTIONS (5)
  - DEHYDRATION [None]
  - STEVENS-JOHNSON SYNDROME [None]
  - SEPSIS [None]
  - HYPERCALCAEMIA [None]
  - ANAEMIA [None]
